FAERS Safety Report 13091757 (Version 1)
Quarter: 2017Q1

REPORT INFORMATION
  Report Type: Spontaneous
  Country: US (occurrence: US)
  Receive Date: 20170106
  Receipt Date: 20170106
  Transmission Date: 20170428
  Serious: No
  Sender: FDA-Public Use
  Company Number: US-BAYER-2017-002738

PATIENT
  Age: 94 Year
  Sex: Female
  Weight: 63.99 kg

DRUGS (2)
  1. MIRALAX [Suspect]
     Active Substance: POLYETHYLENE GLYCOL 3350
     Indication: GASTROINTESTINAL DISORDER
     Route: 048
  2. AMOXYCILLIN [Concomitant]
     Active Substance: AMOXICILLIN

REACTIONS (2)
  - Diarrhoea [Recovered/Resolved]
  - Incorrect dose administered [Unknown]
